FAERS Safety Report 10075597 (Version 1)
Quarter: 2014Q2

REPORT INFORMATION
  Report Type: Spontaneous
  Country: US (occurrence: None)
  Receive Date: 20140411
  Receipt Date: 20140411
  Transmission Date: 20141212
  Serious: Yes (Hospitalization)
  Sender: FDA-Public Use
  Company Number: None

PATIENT
  Age: 73 Year
  Sex: Male

DRUGS (10)
  1. ZYTIGA [Suspect]
     Indication: PRODUCT USED FOR UNKNOWN INDICATION
     Route: 048
     Dates: start: 20140305
  2. LIPITOR [Concomitant]
  3. PREDNISONE [Concomitant]
  4. LEXAPRO [Concomitant]
  5. CASODEX [Concomitant]
  6. VIT D [Concomitant]
  7. CALCIUM [Concomitant]
  8. VITC [Concomitant]
  9. CENTRUM SILVER [Concomitant]
  10. ASPIRIN [Concomitant]

REACTIONS (1)
  - Spinal cord neoplasm [None]
